FAERS Safety Report 18008042 (Version 1)
Quarter: 2020Q3

REPORT INFORMATION
  Report Type: Report from Study
  Country: KR (occurrence: KR)
  Receive Date: 20200710
  Receipt Date: 20200710
  Transmission Date: 20201103
  Serious: Yes (Death)
  Sender: FDA-Public Use
  Company Number: KR-MYLANLABS-2018M1080579

PATIENT
  Sex: Female

DRUGS (9)
  1. CYCLOPHOSPHAMIDE. [Suspect]
     Active Substance: CYCLOPHOSPHAMIDE
     Indication: LYMPHOMA
     Dosage: 1000MG/M2, QDON DAYS 0, 1, AND 2 FOR PERIPHERAL BLOOD STEM CELL MOBILISATION
     Route: 065
  2. CYCLOPHOSPHAMIDE. [Suspect]
     Active Substance: CYCLOPHOSPHAMIDE
     Indication: HAEMATOPOIETIC STEM CELL MOBILISATION
     Dosage: 1500MG/M2, QDAS TRANSPLANT CONDITIONING REGIMEN; ON DAYS ?5, ?4, ?3, AND ?2
     Route: 065
  3. METHYLPREDNISOLONE. [Concomitant]
     Active Substance: METHYLPREDNISOLONE
     Indication: PROPHYLAXIS
     Dosage: 1MG/KGON DAYS ?9 TO ?2, THEN TAPERED OFF OVER 6 DAYS
     Route: 065
  4. ETOPOSIDE. [Suspect]
     Active Substance: ETOPOSIDE
     Indication: LYMPHOMA
     Dosage: 150MG/M2,QDON DAYS 0, 1, AND 2 FOR PERIPHERAL BLOOD STEM CELL MOBILISATION
     Route: 065
  5. NIMUSTINE [Suspect]
     Active Substance: NIMUSTINE
     Indication: BONE MARROW CONDITIONING REGIMEN
     Dosage: 144 MILLIGRAM
     Route: 042
     Dates: start: 20070708, end: 20070710
  6. CYCLOPHOSPHAMIDE. [Suspect]
     Active Substance: CYCLOPHOSPHAMIDE
     Indication: BONE MARROW CONDITIONING REGIMEN
     Dosage: 1437 MILLIGRAM, QD
     Route: 042
     Dates: start: 20070711, end: 20070714
  7. ETOPOSIDE. [Suspect]
     Active Substance: ETOPOSIDE
     Indication: BONE MARROW CONDITIONING REGIMEN
     Dosage: 767 MILLIGRAM, QD
     Route: 042
     Dates: start: 20070708, end: 20070710
  8. ETOPOSIDE. [Suspect]
     Active Substance: ETOPOSIDE
     Indication: HAEMATOPOIETIC STEM CELL MOBILISATION
     Dosage: 800MG/M2 QDAS TRANSPLANT CONDITIONING REGIMEN ON DAYS ?8, ?7, AND ?6
     Route: 065
  9. NIMUSTINE [Suspect]
     Active Substance: NIMUSTINE
     Indication: LYMPHOMA
     Dosage: 150MG/M2, QDON DAYS ?8, ?7, AND ?6
     Route: 065

REACTIONS (1)
  - Pulmonary veno-occlusive disease [Fatal]
